FAERS Safety Report 6618511-7 (Version None)
Quarter: 2010Q1

REPORT INFORMATION
  Report Type: 
  Country: None (occurrence: None)
  Receive Date: 20100308
  Receipt Date: 20100225
  Transmission Date: 20100710
  Serious: Yes (Other)
  Sender: FDA-Public Use
  Company Number: US-ELI_LILLY_AND_COMPANY-US201002007281

PATIENT
  Sex: Male
  Weight: 106.58 kg

DRUGS (2)
  1. BYETTA [Suspect]
     Indication: TYPE 2 DIABETES MELLITUS
     Dosage: UNK, UNKNOWN
  2. INSULIN [Concomitant]

REACTIONS (4)
  - BACK PAIN [None]
  - HAEMATOCHEZIA [None]
  - OFF LABEL USE [None]
  - PANCREATITIS ACUTE [None]
